FAERS Safety Report 9685014 (Version 2)
Quarter: 2013Q4

REPORT INFORMATION
  Report Type: Report from Study
  Country: US (occurrence: US)
  Receive Date: 20131113
  Receipt Date: 20131119
  Transmission Date: 20140711
  Serious: Yes (Hospitalization)
  Sender: FDA-Public Use
  Company Number: US-ROCHE-1301166

PATIENT
  Sex: Male

DRUGS (2)
  1. XELODA [Suspect]
     Indication: BREAST CANCER METASTATIC
     Dosage: CYCLE 1
     Route: 065
  2. XELODA [Suspect]
     Dosage: FOR 14 DAYS, CYCLE 2
     Route: 065
     Dates: start: 20131111

REACTIONS (3)
  - Pneumonia [Unknown]
  - Pericardial effusion malignant [Unknown]
  - Pleural effusion [Unknown]
